FAERS Safety Report 11212749 (Version 1)
Quarter: 2015Q2

REPORT INFORMATION
  Report Type: Report from Study
  Country: CA (occurrence: CA)
  Receive Date: 20150623
  Receipt Date: 20150623
  Transmission Date: 20150821
  Serious: Yes (Hospitalization)
  Sender: FDA-Public Use
  Company Number: CA-AEGERION PHARMACEUTICALS-AEGR001107

PATIENT

DRUGS (3)
  1. JUXTAPID [Suspect]
     Active Substance: LOMITAPIDE MESYLATE
     Indication: TYPE IIA HYPERLIPIDAEMIA
     Dosage: 10 MG, UNK
     Route: 048
     Dates: start: 20140920
  2. JUXTAPID [Suspect]
     Active Substance: LOMITAPIDE MESYLATE
     Dosage: 20 UNK, UNK
     Route: 048
  3. JUXTAPID [Suspect]
     Active Substance: LOMITAPIDE MESYLATE
     Dosage: 10 UNK, UNK
     Route: 048
     Dates: start: 201506

REACTIONS (8)
  - Hunger [Unknown]
  - Product use issue [Unknown]
  - Middle insomnia [Recovered/Resolved]
  - Fatigue [Recovering/Resolving]
  - Abdominal pain upper [Recovered/Resolved]
  - Acute coronary syndrome [Unknown]
  - Blood iron decreased [Recovered/Resolved]
  - Anaemia [Unknown]

NARRATIVE: CASE EVENT DATE: 20150605
